FAERS Safety Report 21649860 (Version 1)
Quarter: 2022Q4

REPORT INFORMATION
  Report Type: Spontaneous
  Country: ES (occurrence: ES)
  Receive Date: 20221128
  Receipt Date: 20221128
  Transmission Date: 20230113
  Serious: Yes (Hospitalization)
  Sender: FDA-Public Use
  Company Number: None

PATIENT
  Age: 78 Year
  Sex: Female

DRUGS (5)
  1. MEMANTINE [Suspect]
     Active Substance: MEMANTINE
     Indication: Cognitive disorder
     Dosage: 20 MILLIGRAM DAILY; 20.0 MG C/24 H  , MEMANTINA (2299A) , DURATION : 3 YEARS
     Dates: start: 20181126, end: 20211230
  2. PARACETAMOL AUROVITAS SPAIN [Concomitant]
     Indication: Product used for unknown indication
     Dosage: 1.0 G DECO  , 1 G TABLETS EFG, 40 TABLETS , FORM STRENGTH : 1 GRAM
     Dates: start: 20210512
  3. QUETIAPINE FUMARATE [Concomitant]
     Active Substance: QUETIAPINE FUMARATE
     Indication: Dementia Alzheimer^s type
     Dosage: 25.0 MG CE  , EFG, 60 TABLETS , FORM STRENGTH : 25 MG
     Dates: start: 20210908
  4. CONDROSAN [Concomitant]
     Indication: Osteoarthritis
     Dosage: 800.0 MG DE  , 60 CAPSULES , FORM STRENGTH : 400 MG
     Dates: start: 20201223
  5. ATORVASTATIN ALTER [Concomitant]
     Indication: Lipid metabolism disorder
     Dosage: 20.0 MG CE  , EFG, 28 TABLETS , FORM STRENGTH : 20 MG
     Dates: start: 20120710

REACTIONS (1)
  - Pemphigoid [Recovered/Resolved]

NARRATIVE: CASE EVENT DATE: 20211230
